FAERS Safety Report 4385083-X (Version None)
Quarter: 2004Q2

REPORT INFORMATION
  Report Type: 
  Country: None (occurrence: None)
  Receive Date: 20040625
  Receipt Date: 20040617
  Transmission Date: 20050107
  Serious: Yes (Hospitalization)
  Sender: FDA-Public Use
  Company Number: FR-BRISTOL-MYERS SQUIBB COMPANY-12618823

PATIENT
  Age: 70 Year
  Sex: Female

DRUGS (2)
  1. COUMADIN [Suspect]
     Dosage: COUMADINE WAS STOPPED DURING HOSPITAL. AND REPLACED BY HEPARIN. COUMADINE WAS RE-INTRODUCED 4/22/04
     Route: 048
  2. ACTONEL [Suspect]
     Dosage: UNSPECIFIED DATE AND DOSAGE

REACTIONS (4)
  - HIATUS HERNIA [None]
  - OESOPHAGITIS [None]
  - RECTAL HAEMORRHAGE [None]
  - RENAL FAILURE [None]
